FAERS Safety Report 8552559-0 (Version None)
Quarter: 2012Q3

REPORT INFORMATION
  Report Type: 
  Country: None (occurrence: None)
  Receive Date: 20120723
  Receipt Date: 20120723
  Transmission Date: 20120928
  Serious: Yes (Life-Threatening)
  Sender: FDA-Public Use
  Company Number: None

PATIENT
  Age: 60 Year
  Sex: Female
  Weight: 80.7403 kg

DRUGS (1)
  1. ATENOLOL [Suspect]
     Indication: PALPITATIONS
     Dates: start: 20120404, end: 20120608

REACTIONS (4)
  - SUPRAVENTRICULAR TACHYCARDIA [None]
  - PRODUCT SUBSTITUTION ISSUE [None]
  - EXTRASYSTOLES [None]
  - PRODUCT QUALITY ISSUE [None]
